FAERS Safety Report 9316627 (Version 2)
Quarter: 2013Q2

REPORT INFORMATION
  Report Type: Spontaneous
  Country: US (occurrence: US)
  Receive Date: 20130530
  Receipt Date: 20130628
  Transmission Date: 20140414
  Serious: Yes (Life-Threatening, Hospitalization)
  Sender: FDA-Public Use
  Company Number: US-B.I. PHARMACEUTICALS,INC./RIDGEFIELD-2013-BI-14175BP

PATIENT
  Age: 63 Year
  Sex: Female
  Weight: 121.56 kg

DRUGS (4)
  1. PRADAXA [Suspect]
     Indication: ATRIAL FIBRILLATION
     Dosage: 300 MG
     Route: 048
     Dates: end: 201305
  2. SPIRONOLACTONE [Concomitant]
     Route: 048
     Dates: start: 20120801
  3. LISINOPRIL [Concomitant]
     Indication: HYPERTENSION
     Dates: start: 20120801
  4. IBUPROFEN [Concomitant]
     Dates: start: 20120801

REACTIONS (2)
  - Coagulopathy [Recovered/Resolved]
  - Haemorrhage [Not Recovered/Not Resolved]
